FAERS Safety Report 15204479 (Version 4)
Quarter: 2019Q2

REPORT INFORMATION
  Report Type: Other
  Country: DK (occurrence: DK)
  Receive Date: 20180726
  Receipt Date: 20190404
  Transmission Date: 20190711
  Serious: Yes (Hospitalization)
  Sender: FDA-Public Use
  Company Number: DK-RARE DISEASE THERAPEUTICS, INC.-2052785

PATIENT
  Age: 32 Year
  Sex: Female
  Weight: 54 kg

DRUGS (13)
  1. PURIXAN [Suspect]
     Active Substance: MERCAPTOPURINE
     Indication: CROHN^S DISEASE
     Route: 048
  2. LEVETIRACETAM. [Concomitant]
     Active Substance: LEVETIRACETAM
     Route: 065
  3. INFLIXMAB [Suspect]
     Active Substance: INFLIXIMAB
     Route: 065
  4. COLESEVELAM [Concomitant]
     Active Substance: COLESEVELAM
     Route: 065
  5. OCTREOTIDE. [Suspect]
     Active Substance: OCTREOTIDE
     Route: 065
  6. LAMOTRIGINE. [Concomitant]
     Active Substance: LAMOTRIGINE
     Route: 065
  7. LIRAGLUTIDE [Suspect]
     Active Substance: LIRAGLUTIDE
     Route: 065
  8. MERCAPTOPURINE. [Suspect]
     Active Substance: MERCAPTOPURINE
     Route: 048
  9. SPIRONOLACTONE. [Suspect]
     Active Substance: SPIRONOLACTONE
     Route: 065
  10. VEDOLIZUMAB [Suspect]
     Active Substance: VEDOLIZUMAB
     Route: 065
  11. TYSABRI [Suspect]
     Active Substance: NATALIZUMAB
     Route: 065
  12. ADALIMUMAB [Suspect]
     Active Substance: ADALIMUMAB
     Route: 065
  13. LOPERAMIDE [Concomitant]
     Active Substance: LOPERAMIDE
     Route: 065

REACTIONS (8)
  - Abdominal pain [Unknown]
  - Bile acid malabsorption [Not Recovered/Not Resolved]
  - Functional gastrointestinal disorder [Not Recovered/Not Resolved]
  - Drug ineffective [Unknown]
  - Clostridium difficile colitis [Unknown]
  - Off label use [None]
  - Amylase increased [Recovered/Resolved]
  - Product use in unapproved indication [Unknown]
